FAERS Safety Report 6159471-5 (Version None)
Quarter: 2009Q2

REPORT INFORMATION
  Report Type: 
  Country: None (occurrence: None)
  Receive Date: 20090417
  Receipt Date: 20090415
  Transmission Date: 20091009
  Serious: Yes (Death, Hospitalization)
  Sender: FDA-Public Use
  Company Number: US-GENENTECH-280406

PATIENT
  Age: 94 Year
  Sex: Male

DRUGS (8)
  1. RANIBIZUMAB [Suspect]
     Indication: MACULAR DEGENERATION
  2. EPI-RAD 90 [Suspect]
     Indication: DRUG USE FOR UNKNOWN INDICATION
  3. HYDROXYUREA [Concomitant]
     Indication: THROMBOCYTHAEMIA
     Dosage: 1000 MG, UNK
     Dates: start: 20090328, end: 20090402
  4. FUROSEMIDE [Concomitant]
     Indication: OEDEMA PERIPHERAL
     Dosage: 20 MG, UNK
     Dates: start: 20090328, end: 20090402
  5. NITROGLYCERIN [Concomitant]
     Indication: PROPHYLAXIS
     Dosage: UNK
     Dates: start: 20090328, end: 20090402
  6. LOVENOX [Concomitant]
     Indication: PROPHYLAXIS
     Dosage: UNK
     Dates: start: 20090328, end: 20090402
  7. METOPROLOL TARTRATE [Concomitant]
     Indication: HYPERTENSION
     Dosage: UNK
     Dates: start: 20090328, end: 20090402
  8. PROTONIX [Concomitant]
     Indication: PROPHYLAXIS
     Dosage: UNK
     Dates: start: 20090328, end: 20090402

REACTIONS (1)
  - MYOCARDIAL INFARCTION [None]
